FAERS Safety Report 7943454-6 (Version None)
Quarter: 2011Q4

REPORT INFORMATION
  Report Type: 
  Country: None (occurrence: None)
  Receive Date: 20111128
  Receipt Date: 20111118
  Transmission Date: 20120403
  Serious: Yes (Hospitalization, Other)
  Sender: FDA-Public Use
  Company Number: JP-CEPHALON-2011004688

PATIENT
  Sex: Female
  Weight: 48 kg

DRUGS (16)
  1. CLEMASTINE FUMARATE [Concomitant]
     Dates: start: 20110225, end: 20110922
  2. FAMOTIDINE [Concomitant]
  3. RILMAZAFONE HYDROCHLORIDE [Concomitant]
     Dates: start: 20110323
  4. URSODIOL [Concomitant]
     Dates: start: 20110622
  5. BENDAMUSTINE HCL [Suspect]
     Indication: B-CELL LYMPHOMA
     Route: 042
     Dates: start: 20110203
  6. LOXOPROFEN SODIUM [Concomitant]
     Dates: start: 20110225, end: 20110922
  7. SENNOSIDE [Concomitant]
     Dates: start: 20110707, end: 20110709
  8. POVIDONE IODINE [Concomitant]
  9. ACYCLOVIR [Concomitant]
  10. MAGNESIUM OXIDE [Concomitant]
  11. ETIZOLAM [Concomitant]
  12. GRANISETRON HCL [Concomitant]
     Dates: start: 20110203, end: 20110922
  13. SULFAMETHOXAZOLE AND TRIMETHOPRIM [Concomitant]
  14. REBAMIPIDE [Concomitant]
  15. RITUXIMAB [Suspect]
     Indication: B-CELL LYMPHOMA
     Route: 042
     Dates: start: 20110225
  16. ITRACONAZOLE [Concomitant]
     Dates: end: 20110608

REACTIONS (8)
  - PANCYTOPENIA [None]
  - HYPOGAMMAGLOBULINAEMIA [None]
  - LYMPHOCYTE COUNT DECREASED [None]
  - SWELLING [None]
  - LIVER DISORDER [None]
  - PLATELET COUNT DECREASED [None]
  - WHITE BLOOD CELL COUNT DECREASED [None]
  - OEDEMA PERIPHERAL [None]
